FAERS Safety Report 6085510-6 (Version None)
Quarter: 2009Q1

REPORT INFORMATION
  Report Type: 
  Country: None (occurrence: None)
  Receive Date: 20090217
  Receipt Date: 20080304
  Transmission Date: 20090719
  Serious: Yes (Other)
  Sender: FDA-Public Use
  Company Number: US-WYE-H02956308

PATIENT
  Age: 50 Year
  Sex: Female

DRUGS (4)
  1. ALAVERT [Suspect]
     Indication: HYPERSENSITIVITY
     Dosage: 1 TABLET 1X PER 1 DAY, ORAL
     Route: 048
     Dates: start: 20080201, end: 20080303
  2. PREDNISONE TAB [Concomitant]
  3. LIPITOR [Concomitant]
  4. SINGULAIR [Concomitant]

REACTIONS (4)
  - DRY MOUTH [None]
  - DYSPNOEA [None]
  - INNER EAR DISORDER [None]
  - VISION BLURRED [None]
